FAERS Safety Report 8846630 (Version 1)
Quarter: 2012Q4

REPORT INFORMATION
  Report Type: 
  Country: US (occurrence: US)
  Receive Date: 20121017
  Receipt Date: 20121017
  Transmission Date: 20130627
  Serious: No
  Sender: FDA-Public Use
  Company Number: US-BAYER-2012-108887

PATIENT
  Age: 83 Year
  Sex: Male

DRUGS (4)
  1. LEVITRA [Suspect]
     Indication: ERECTILE DYSFUNCTION
     Dosage: 10 mg, UNK
     Route: 048
     Dates: start: 20120918, end: 20120920
  2. PREVACID [Concomitant]
  3. ACCUPRIL [Concomitant]
  4. VALIUM [Concomitant]

REACTIONS (1)
  - Abdominal discomfort [Not Recovered/Not Resolved]
